FAERS Safety Report 16687538 (Version 1)
Quarter: 2019Q3

REPORT INFORMATION
  Report Type: Report from Study
  Country: NG (occurrence: NG)
  Receive Date: 20190809
  Receipt Date: 20190809
  Transmission Date: 20191004
  Serious: Yes (Other)
  Sender: FDA-Public Use
  Company Number: NG-JNJFOC-20190801712

PATIENT

DRUGS (6)
  1. DARUNAVIR [Suspect]
     Active Substance: DARUNAVIR
     Indication: HIV INFECTION
     Route: 048
  2. RITONAVIR. [Interacting]
     Active Substance: RITONAVIR
     Indication: HIV INFECTION
     Route: 065
  3. EMTRICITABINE [Suspect]
     Active Substance: EMTRICITABINE
     Indication: HIV INFECTION
     Route: 065
  4. ARTESUNATE [Interacting]
     Active Substance: ARTESUNATE
     Indication: PRODUCT USED FOR UNKNOWN INDICATION
     Route: 065
  5. AMODIAQUINE [Interacting]
     Active Substance: AMODIAQUINE
     Indication: PRODUCT USED FOR UNKNOWN INDICATION
     Route: 065
  6. TENOFOVIR [Suspect]
     Active Substance: TENOFOVIR
     Indication: HIV INFECTION
     Route: 065

REACTIONS (3)
  - Drug level increased [Unknown]
  - Hepatotoxicity [Unknown]
  - Drug interaction [Unknown]
